FAERS Safety Report 6205681-8 (Version None)
Quarter: 2009Q2

REPORT INFORMATION
  Report Type: 
  Country: None (occurrence: None)
  Receive Date: 20090527
  Receipt Date: 20090415
  Transmission Date: 20091009
  Serious: No
  Sender: FDA-Public Use
  Company Number: US-ABBOTT-09P-163-0568577-00

PATIENT
  Sex: Male
  Weight: 83.99 kg

DRUGS (8)
  1. SIMCOR [Suspect]
     Indication: BLOOD CHOLESTEROL INCREASED
     Dosage: 500/20
     Route: 048
     Dates: start: 20090301
  2. LOTREL [Concomitant]
     Indication: HYPERTENSION
     Dosage: 5/20
     Route: 048
  3. ASPIRIN [Concomitant]
     Indication: FLUSHING
     Route: 048
  4. ASPIRIN [Concomitant]
     Indication: CARDIAC DISORDER
  5. ASPIRIN [Concomitant]
     Indication: PROPHYLAXIS
  6. FISH OIL [Concomitant]
     Indication: MEDICAL DIET
     Route: 048
  7. MULTI-VITAMIN [Concomitant]
     Indication: VITAMIN SUPPLEMENTATION
     Route: 048
  8. VITAMIN D3 [Concomitant]
     Indication: VITAMIN SUPPLEMENTATION
     Route: 048

REACTIONS (2)
  - EPISTAXIS [None]
  - FLUSHING [None]
